FAERS Safety Report 7329302-6 (Version None)
Quarter: 2011Q1

REPORT INFORMATION
  Report Type: 
  Country: None (occurrence: None)
  Receive Date: 20110303
  Receipt Date: 20110224
  Transmission Date: 20110831
  Serious: Yes (Other)
  Sender: FDA-Public Use
  Company Number: B0703169A

PATIENT
  Age: 72 Year
  Sex: Male

DRUGS (3)
  1. ARIXTRA [Suspect]
     Indication: THROMBOSIS PROPHYLAXIS
     Dosage: 2.5MG PER DAY
     Route: 058
     Dates: start: 20110128, end: 20110219
  2. CLOPIDOGREL [Suspect]
     Indication: ACUTE CORONARY SYNDROME
     Route: 048
     Dates: start: 20110128, end: 20110203
  3. KARDEGIC [Concomitant]
     Indication: ACUTE CORONARY SYNDROME
     Dosage: 160MG PER DAY
     Route: 048
     Dates: start: 20110204, end: 20110221

REACTIONS (1)
  - THROMBOCYTOSIS [None]
